FAERS Safety Report 9416411 (Version 1)
Quarter: 2013Q3

REPORT INFORMATION
  Report Type: Spontaneous
  Country: US (occurrence: US)
  Receive Date: 20130724
  Receipt Date: 20130724
  Transmission Date: 20140515
  Serious: No
  Sender: FDA-Public Use
  Company Number: US-PFIZER INC-2009171542

PATIENT
  Age: 69 Year
  Sex: Male

DRUGS (9)
  1. CALAN SR [Suspect]
     Dosage: UNK
     Route: 065
  2. DEPO-TESTOSTERONE [Interacting]
     Indication: HORMONE REPLACEMENT THERAPY
     Dosage: UNK
  3. ALTACE [Interacting]
     Dosage: UNK
  4. UROXATRAL [Interacting]
     Indication: PROSTATIC DISORDER
     Dosage: 10 MG, 1X/DAY
     Route: 048
     Dates: start: 200901
  5. UROXATRAL [Interacting]
     Indication: NOCTURIA
  6. ACTIGALL [Interacting]
     Dosage: UNK
  7. SYNTHROID [Interacting]
     Dosage: UNK
  8. INDAPAMIDE [Interacting]
     Dosage: UNK
  9. HYTRIN [Interacting]
     Dosage: UNK

REACTIONS (8)
  - Drug interaction [Unknown]
  - Pain in extremity [Unknown]
  - Trigger finger [Unknown]
  - Tendon pain [Unknown]
  - Hypotension [Unknown]
  - Dizziness [Recovering/Resolving]
  - Fatigue [Recovering/Resolving]
  - Headache [Recovering/Resolving]
